FAERS Safety Report 7034757-0 (Version None)
Quarter: 2010Q4

REPORT INFORMATION
  Report Type: 
  Country: None (occurrence: None)
  Receive Date: 20101008
  Receipt Date: 20100930
  Transmission Date: 20110411
  Serious: Yes (Hospitalization)
  Sender: FDA-Public Use
  Company Number: PHHY2010FR65815

PATIENT
  Sex: Male

DRUGS (8)
  1. PARLODEL [Suspect]
     Dosage: 30 MG (10 MG, 3 IN 1 DAY)
     Route: 048
  2. TIAPRIDAL [Suspect]
     Dosage: UNK
     Dates: start: 20100402, end: 20100607
  3. CARBAMAZEPINE [Concomitant]
     Dosage: 800 MG (400 MG, 2 IN 1 DAY)
     Route: 048
  4. NOCTRAN [Concomitant]
     Dosage: 10 MG, (10 MG, 1 IN 1 DAY)
     Route: 048
  5. DEPAMIDE [Concomitant]
     Dosage: 900 MG, (300 MG, 3 IN 1 DAY)
     Route: 048
  6. CETRIZINE [Concomitant]
     Dosage: 10 MG, (10 MG, 1 IN 1 DAY)
     Route: 048
  7. FOLIC ACID [Concomitant]
     Dosage: 10 MG (5 MG, 2 IN 1 DAY)
     Route: 048
  8. ALPRAZOLAM [Concomitant]
     Dosage: 2 MG (0.5 MG, 4 IN 1 DAY)
     Route: 048

REACTIONS (6)
  - DRUG INTERACTION [None]
  - HYPERHIDROSIS [None]
  - HYPERTHERMIA [None]
  - NEUROLEPTIC MALIGNANT SYNDROME [None]
  - PALLOR [None]
  - TACHYCARDIA [None]
